FAERS Safety Report 6091239-0 (Version None)
Quarter: 2009Q1

REPORT INFORMATION
  Report Type: 
  Country: None (occurrence: None)
  Receive Date: 20090223
  Receipt Date: 20090210
  Transmission Date: 20090719
  Serious: Yes (Hospitalization)
  Sender: FDA-Public Use
  Company Number: 2009AL000877

PATIENT
  Age: 31 Year
  Sex: Female

DRUGS (2)
  1. FEVERALL [Suspect]
  2. GRANOCYTE [Concomitant]

REACTIONS (3)
  - DIZZINESS [None]
  - FALL [None]
  - FEELING ABNORMAL [None]
